FAERS Safety Report 6389716-8 (Version None)
Quarter: 2009Q4

REPORT INFORMATION
  Report Type: 
  Country: None (occurrence: None)
  Receive Date: 20091002
  Receipt Date: 20091002
  Transmission Date: 20100525
  Serious: Yes (Other)
  Sender: FDA-Public Use
  Company Number: None

PATIENT
  Sex: Female

DRUGS (1)
  1. VIMPAT [Suspect]
     Indication: EPILEPSY
     Dosage: 400 MG Q12H PO
     Route: 048

REACTIONS (4)
  - AGGRESSION [None]
  - DIPLOPIA [None]
  - EMOTIONAL DISORDER [None]
  - PERSONALITY CHANGE [None]
